FAERS Safety Report 18318029 (Version 6)
Quarter: 2021Q2

REPORT INFORMATION
  Report Type: Spontaneous
  Country: US (occurrence: US)
  Receive Date: 20200928
  Receipt Date: 20210420
  Transmission Date: 20210717
  Serious: Yes (Other)
  Sender: FDA-Public Use
  Company Number: US-PFIZER INC-2020367044

PATIENT
  Age: 79 Year
  Sex: Female

DRUGS (1)
  1. LYRICA [Suspect]
     Active Substance: PREGABALIN
     Indication: POLYNEUROPATHY
     Dosage: 50 MG, 2X/DAY (QTY: 180 CAPSULES; REFILL: 3)
     Route: 048

REACTIONS (3)
  - Loss of personal independence in daily activities [Unknown]
  - Physical product label issue [Unknown]
  - Malaise [Unknown]
